FAERS Safety Report 11419641 (Version 1)
Quarter: 2015Q3

REPORT INFORMATION
  Report Type: Spontaneous
  Country: US (occurrence: None)
  Receive Date: 20150825
  Receipt Date: 20150825
  Transmission Date: 20151125
  Serious: Yes (Hospitalization)
  Sender: FDA-Public Use
  Company Number: None

PATIENT
  Age: 67 Year
  Sex: Female
  Weight: 99.4 kg

DRUGS (4)
  1. DEXAMETHASONE. [Suspect]
     Active Substance: DEXAMETHASONE
     Dates: end: 20150723
  2. VINCRISTINE SULFATE. [Suspect]
     Active Substance: VINCRISTINE SULFATE
     Dates: end: 20150807
  3. DAUNORUBICIN [Suspect]
     Active Substance: DAUNORUBICIN
     Dates: end: 20150807
  4. METHOTREXATE [Suspect]
     Active Substance: METHOTREXATE
     Dates: end: 20150728

REACTIONS (7)
  - Chronic obstructive pulmonary disease [None]
  - Diaphragmatic disorder [None]
  - Respiratory failure [None]
  - Fluid overload [None]
  - Small intestinal obstruction [None]
  - Atrial fibrillation [None]
  - Pneumonia [None]

NARRATIVE: CASE EVENT DATE: 20150819
